FAERS Safety Report 9114680 (Version 1)
Quarter: 2013Q1

REPORT INFORMATION
  Report Type: Spontaneous
  Country: AU (occurrence: None)
  Receive Date: 20130128
  Receipt Date: 20130128
  Transmission Date: 20140127
  Serious: Yes (Life-Threatening)
  Sender: FDA-Public Use
  Company Number: DSU-2013-00350

PATIENT
  Age: 78 Year
  Sex: 0

DRUGS (1)
  1. OLMETEC [Suspect]
     Indication: ESSENTIAL HYPERTENSION
     Dosage: (1 DOSAGE FORMS (1 DOSAGE FORMS, QD), PER ORAL
     Route: 048
     Dates: end: 20120929

REACTIONS (4)
  - Vomiting [None]
  - Intestinal villi atrophy [None]
  - Nausea [None]
  - Malabsorption [None]
